FAERS Safety Report 9323026 (Version 3)
Quarter: 2014Q1

REPORT INFORMATION
  Report Type: Spontaneous
  Country: US (occurrence: US)
  Receive Date: 20130603
  Receipt Date: 20140226
  Transmission Date: 20141002
  Serious: Yes (Hospitalization)
  Sender: FDA-Public Use
  Company Number: US-B.I. PHARMACEUTICALS,INC./RIDGEFIELD-2013-BI-14865BP

PATIENT
  Sex: Male
  Weight: 78.02 kg

DRUGS (8)
  1. PRADAXA [Suspect]
     Indication: PRODUCT USED FOR UNKNOWN INDICATION
     Dosage: 300 MG
     Route: 048
     Dates: start: 20120209, end: 20120515
  2. METOPROLOL [Concomitant]
     Dosage: 50 MG
     Route: 048
  3. ATORVASTATIN [Concomitant]
     Dosage: 40 MG
     Route: 048
  4. AMLODIPINE [Concomitant]
     Route: 065
  5. DIOVAN [Concomitant]
     Route: 065
  6. FUROSEMIDE [Concomitant]
     Dosage: 20 MG
     Route: 048
  7. LUNESTA [Concomitant]
     Route: 048
  8. ASPIRIN [Concomitant]
     Dosage: 81 MG
     Route: 048

REACTIONS (1)
  - Gastrointestinal haemorrhage [Unknown]
